FAERS Safety Report 6282709-0 (Version None)
Quarter: 2009Q3

REPORT INFORMATION
  Report Type: 
  Country: None (occurrence: None)
  Receive Date: 20090724
  Receipt Date: 20090713
  Transmission Date: 20100115
  Serious: Yes (Other)
  Sender: FDA-Public Use
  Company Number: CA-ELI_LILLY_AND_COMPANY-CA200907002674

PATIENT
  Age: 76 Year
  Sex: Female

DRUGS (5)
  1. CYMBALTA [Suspect]
     Indication: FIBROMYALGIA
     Dosage: 60 MG, DAILY (1/D)
     Route: 048
     Dates: start: 20090101, end: 20090601
  2. PRILOSEC [Concomitant]
  3. ATACAND [Concomitant]
  4. ELTROXIN [Concomitant]
  5. TYLENOL                                 /SCH/ [Concomitant]

REACTIONS (2)
  - ECCHYMOSIS [None]
  - THROMBOCYTOPENIA [None]
